FAERS Safety Report 6955412-9 (Version None)
Quarter: 2010Q3

REPORT INFORMATION
  Report Type: 
  Country: None (occurrence: None)
  Receive Date: 20100830
  Receipt Date: 20100819
  Transmission Date: 20110219
  Serious: Yes (Hospitalization)
  Sender: FDA-Public Use
  Company Number: JP-AMGEN-US404580

PATIENT
  Sex: Female
  Weight: 50 kg

DRUGS (15)
  1. ENBREL [Suspect]
     Indication: RHEUMATOID ARTHRITIS
     Route: 058
     Dates: start: 20100122, end: 20100323
  2. HYPEN [Suspect]
     Indication: RHEUMATOID ARTHRITIS
     Route: 048
     Dates: start: 20100215, end: 20100429
  3. GANCICLOVIR [Suspect]
     Indication: PRODUCT USED FOR UNKNOWN INDICATION
     Dosage: 225 MG X 2
     Route: 042
     Dates: start: 20100501, end: 20100609
  4. BREDININ [Concomitant]
     Indication: RHEUMATOID ARTHRITIS
     Route: 048
     Dates: end: 20100430
  5. RIMATIL [Concomitant]
     Indication: RHEUMATOID ARTHRITIS
     Route: 048
     Dates: end: 20100430
  6. ALFAROL [Concomitant]
     Indication: OSTEOPOROSIS
     Route: 048
     Dates: end: 20100430
  7. THYRADIN [Concomitant]
     Indication: AUTOIMMUNE THYROIDITIS
     Route: 048
     Dates: end: 20100430
  8. ERYTHROMYCIN [Concomitant]
     Indication: ATYPICAL MYCOBACTERIAL INFECTION
     Route: 048
     Dates: end: 20100430
  9. BENET [Concomitant]
     Indication: OSTEOPOROSIS
     Route: 048
     Dates: start: 20040701, end: 20100430
  10. PREDNISOLONE [Concomitant]
     Indication: RHEUMATOID ARTHRITIS
     Route: 048
     Dates: end: 20100214
  11. PREDNISOLONE [Concomitant]
     Route: 048
     Dates: start: 20100215, end: 20100314
  12. PREDNISOLONE [Concomitant]
     Route: 048
     Dates: start: 20100315, end: 20100402
  13. PREDNISOLONE [Concomitant]
     Route: 048
     Dates: start: 20100403
  14. ZANTAC [Concomitant]
     Indication: GASTRIC ULCER
     Route: 048
     Dates: end: 20100430
  15. UNSPECIFIED MEDICATION [Concomitant]

REACTIONS (8)
  - CYTOMEGALOVIRUS ENTEROCOLITIS [None]
  - DEVICE RELATED INFECTION [None]
  - DRUG ERUPTION [None]
  - DRUG RASH WITH EOSINOPHILIA AND SYSTEMIC SYMPTOMS [None]
  - LIVER DISORDER [None]
  - NEUTROPHIL COUNT DECREASED [None]
  - ORAL MUCOSA EROSION [None]
  - PYREXIA [None]
